FAERS Safety Report 8334433-8 (Version None)
Quarter: 2012Q2

REPORT INFORMATION
  Report Type: 
  Country: None (occurrence: None)
  Receive Date: 20120503
  Receipt Date: 20120322
  Transmission Date: 20120825
  Serious: Yes (Other)
  Sender: FDA-Public Use
  Company Number: US-BAUSCH-2011BL008096

PATIENT
  Sex: Female

DRUGS (7)
  1. LOTEMAX [Suspect]
     Indication: IMMUNOSUPPRESSANT DRUG THERAPY
     Route: 047
     Dates: start: 20110801, end: 20111114
  2. LOTEMAX [Suspect]
     Route: 047
     Dates: start: 20111115
  3. FISH OIL [Concomitant]
     Indication: MEDICAL DIET
     Route: 048
  4. SERTRALINE HYDROCHLORIDE [Concomitant]
     Indication: NERVOUSNESS
     Route: 048
  5. ASPIRIN [Concomitant]
     Indication: PRODUCT USED FOR UNKNOWN INDICATION
     Route: 048
  6. SIMVASTATIN [Concomitant]
     Indication: HYPERTENSION
     Route: 048
  7. MULTI-VITAMINS [Concomitant]
     Indication: VITAMIN SUPPLEMENTATION

REACTIONS (2)
  - INTRAOCULAR PRESSURE INCREASED [None]
  - FOREIGN BODY SENSATION IN EYES [None]
